FAERS Safety Report 23046305 (Version 1)
Quarter: 2023Q4

REPORT INFORMATION
  Report Type: Spontaneous
  Country: AU (occurrence: AU)
  Receive Date: 20231009
  Receipt Date: 20231009
  Transmission Date: 20240110
  Serious: Yes (Hospitalization, Other)
  Sender: FDA-Public Use
  Company Number: AU-BRISTOL-MYERS SQUIBB COMPANY-2023-141111

PATIENT
  Sex: Male

DRUGS (2)
  1. ELIQUIS [Suspect]
     Active Substance: APIXABAN
     Indication: Cardiac failure congestive
  2. ELIQUIS [Suspect]
     Active Substance: APIXABAN

REACTIONS (2)
  - Product use in unapproved indication [Unknown]
  - Cardiac failure congestive [Unknown]
